FAERS Safety Report 4976829-8 (Version None)
Quarter: 2006Q2

REPORT INFORMATION
  Report Type: 
  Country: None (occurrence: None)
  Receive Date: 20060404
  Receipt Date: 20060328
  Transmission Date: 20061013
  Serious: Yes (Other)
  Sender: FDA-Public Use
  Company Number: 060329-0000298

PATIENT
  Age: 50 Year
  Sex: Female

DRUGS (1)
  1. PANHEMATIN [Suspect]
     Indication: PORPHYRIA ACUTE

REACTIONS (2)
  - COAGULOPATHY [None]
  - TRANSIENT ISCHAEMIC ATTACK [None]
